FAERS Safety Report 13230546 (Version 1)
Quarter: 2017Q1

REPORT INFORMATION
  Report Type: Spontaneous
  Country: US (occurrence: US)
  Receive Date: 20170214
  Receipt Date: 20170214
  Transmission Date: 20170428
  Serious: Yes (Hospitalization)
  Sender: FDA-Public Use
  Company Number: US-RARE DISEASE THERAPEUTICS, INC.-1063059

PATIENT
  Age: 6 Year
  Sex: Female
  Weight: 29.28 kg

DRUGS (3)
  1. CYSTADANE [Suspect]
     Active Substance: BETAINE
     Dates: start: 20170130
  2. CYSTADANE [Suspect]
     Active Substance: BETAINE
     Indication: METHYLENETETRAHYDROFOLATE REDUCTASE DEFICIENCY
     Dates: start: 20141224, end: 20170126
  3. KEPPRA [Concomitant]
     Active Substance: LEVETIRACETAM

REACTIONS (2)
  - Pharyngitis streptococcal [Recovered/Resolved]
  - Overdose [Unknown]

NARRATIVE: CASE EVENT DATE: 20141224
